FAERS Safety Report 24339547 (Version 1)
Quarter: 2024Q3

REPORT INFORMATION
  Report Type: Spontaneous
  Country: US (occurrence: None)
  Receive Date: 20240918
  Receipt Date: 20240918
  Transmission Date: 20241017
  Serious: Yes (Other)
  Sender: Public
  Company Number: None

PATIENT
  Age: 76 Year
  Sex: Female

DRUGS (2)
  1. VEOZAH [Suspect]
     Active Substance: FEZOLINETANT
     Indication: Autonomic nervous system imbalance
     Dosage: FREQUENCY : DAILY;?
     Route: 048
  2. VEOZAH [Concomitant]
     Active Substance: FEZOLINETANT
     Dates: start: 20240807, end: 20240810

REACTIONS (1)
  - Abdominal pain [None]

NARRATIVE: CASE EVENT DATE: 20240807
